FAERS Safety Report 4457755-X (Version None)
Quarter: 2004Q3

REPORT INFORMATION
  Report Type: 
  Country: None (occurrence: None)
  Receive Date: 20040831
  Receipt Date: 20040607
  Transmission Date: 20050211
  Serious: No
  Sender: FDA-Public Use
  Company Number: FABR-10628

PATIENT
  Age: 49 Year
  Sex: Female
  Weight: 67.1324 kg

DRUGS (10)
  1. FABRAZYME [Suspect]
     Indication: FABRY'S DISEASE
     Dosage: 70 MG Q2WKS IV
     Route: 042
     Dates: start: 20030620
  2. VERAPAMIL [Concomitant]
  3. NEURONTIN [Concomitant]
  4. CRESTOR [Concomitant]
  5. ATIVAN [Concomitant]
  6. ZOLOFT [Concomitant]
  7. ASPIRIN [Concomitant]
  8. CLARITIN [Concomitant]
  9. TYLENOL [Concomitant]
  10. DIOVAN [Concomitant]

REACTIONS (3)
  - CHILLS [None]
  - FATIGUE [None]
  - RESTLESSNESS [None]
